FAERS Safety Report 6533411-9 (Version None)
Quarter: 2010Q1

REPORT INFORMATION
  Report Type: 
  Country: None (occurrence: None)
  Receive Date: 20100111
  Receipt Date: 20091230
  Transmission Date: 20100710
  Serious: Yes (Other)
  Sender: FDA-Public Use
  Company Number: US-JNJCH-2009033331

PATIENT
  Age: 60 Year
  Sex: Female
  Weight: 76.2 kg

DRUGS (4)
  1. NEOSPORIN PLUS MAXIMUM STRENGTH [Suspect]
     Indication: EYELID DISORDER
     Dosage: TEXT:UNSPECIFIED FOUR TIMES
     Route: 061
     Dates: start: 20091207, end: 20091208
  2. BENADRYL [Suspect]
     Indication: EYELID DISORDER
     Dosage: TEXT:UNSPECIFIED
     Route: 048
  3. LOCOID [Concomitant]
     Indication: EYELID DISORDER
     Dosage: TEXT:0.1% UNSPECIFIED
     Route: 065
  4. ALL OTHER THERAPEUTIC PRODUCTS [Concomitant]
     Indication: DRUG USE FOR UNKNOWN INDICATION
     Dosage: TEXT:UNSPECIFIED
     Route: 065

REACTIONS (5)
  - CONDITION AGGRAVATED [None]
  - ERYTHEMA OF EYELID [None]
  - EYELID OEDEMA [None]
  - EYELIDS PRURITUS [None]
  - OFF LABEL USE [None]
